FAERS Safety Report 12688189 (Version 1)
Quarter: 2016Q3

REPORT INFORMATION
  Report Type: Spontaneous
  Country: US (occurrence: US)
  Receive Date: 20160825
  Receipt Date: 20160825
  Transmission Date: 20161109
  Serious: No
  Sender: FDA-Public Use
  Company Number: US-MISSION PHARMACAL COMPANY-1056756

PATIENT
  Age: 16 Year
  Sex: Female

DRUGS (1)
  1. THIOLA [Suspect]
     Active Substance: TIOPRONIN
     Indication: CYSTINURIA
     Route: 065
     Dates: start: 20160809

REACTIONS (7)
  - Dehydration [None]
  - Abdominal pain [Unknown]
  - Headache [Unknown]
  - Lyme disease [None]
  - Ocular vascular disorder [Unknown]
  - Arthralgia [Unknown]
  - Vomiting [Unknown]
